FAERS Safety Report 4993280-5 (Version None)
Quarter: 2006Q1

REPORT INFORMATION
  Report Type: 
  Country: None (occurrence: None)
  Receive Date: 20060314
  Receipt Date: 20050607
  Transmission Date: 20060701
  Serious: Yes (Other)
  Sender: FDA-Public Use
  Company Number: 200511821BCC

PATIENT
  Age: 39 Year
  Sex: Female
  Weight: 44.4525 kg

DRUGS (2)
  1. ALEVE [Suspect]
     Indication: ARTHRITIS
     Dosage: 660 MG, TOTAL DAILY, ORAL
     Route: 048
     Dates: end: 20050428
  2. LAMICTAL [Concomitant]

REACTIONS (4)
  - ANGIONEUROTIC OEDEMA [None]
  - DYSPHAGIA [None]
  - LOCAL SWELLING [None]
  - SWELLING FACE [None]
